FAERS Safety Report 5627131-2 (Version None)
Quarter: 2008Q1

REPORT INFORMATION
  Report Type: 
  Country: None (occurrence: None)
  Receive Date: 20080212
  Receipt Date: 20080212
  Transmission Date: 20080703
  Serious: Yes (Other)
  Sender: FDA-Public Use
  Company Number: None

PATIENT
  Age: 56 Year
  Sex: Male
  Weight: 106.5953 kg

DRUGS (1)
  1. AVELOX [Suspect]
     Indication: UPPER RESPIRATORY TRACT INFECTION
     Dosage: ONE TAB -400MG- QD PO
     Route: 048
     Dates: start: 20080128, end: 20080202

REACTIONS (3)
  - ANOSMIA [None]
  - DRUG INEFFECTIVE [None]
  - DYSGEUSIA [None]
